FAERS Safety Report 14076702 (Version 1)
Quarter: 2017Q4

REPORT INFORMATION
  Report Type: Spontaneous
  Country: JP (occurrence: JP)
  Receive Date: 20171011
  Receipt Date: 20171011
  Transmission Date: 20180321
  Serious: Yes (Other)
  Sender: FDA-Public Use
  Company Number: JP-HQ SPECIALTY-JP-2017INT000356

PATIENT
  Age: 64 Year
  Sex: Male

DRUGS (2)
  1. CISPLATIN. [Suspect]
     Active Substance: CISPLATIN
     Indication: OROPHARYNGEAL CANCER
     Dosage: 100 MG/M2 WEEKLY FOR FOUR WEEKS (RADPLAT THERAPY)
     Route: 065
  2. RADIOTHERAPY [Suspect]
     Active Substance: RADIATION THERAPY
     Indication: OROPHARYNGEAL CANCER
     Dosage: 70 GY
     Route: 065

REACTIONS (2)
  - Osteoradionecrosis [Recovered/Resolved with Sequelae]
  - Infection [Recovered/Resolved with Sequelae]
